FAERS Safety Report 13419807 (Version 1)
Quarter: 2017Q2

REPORT INFORMATION
  Report Type: Report from Study
  Country: None (occurrence: US)
  Receive Date: 20170407
  Receipt Date: 20170407
  Transmission Date: 20170830
  Serious: Yes (Hospitalization)
  Sender: FDA-Public Use
  Company Number: US-ABBVIE-17K-163-1931377-00

PATIENT
  Age: 54 Year
  Sex: Female

DRUGS (1)
  1. HUMIRA [Suspect]
     Active Substance: ADALIMUMAB
     Indication: RHEUMATOID ARTHRITIS
     Route: 058
     Dates: start: 20170109, end: 20170228

REACTIONS (11)
  - Heart rate decreased [Recovered/Resolved]
  - Arthralgia [Unknown]
  - Vitamin B12 decreased [Unknown]
  - Headache [Recovered/Resolved]
  - Demyelination [Not Recovered/Not Resolved]
  - Headache [Recovered/Resolved]
  - Red blood cell count decreased [Unknown]
  - Orthostatic hypotension [Recovered/Resolved]
  - Syncope [Recovered/Resolved]
  - Hypertension [Recovered/Resolved]
  - Drug ineffective [Unknown]

NARRATIVE: CASE EVENT DATE: 2017
